FAERS Safety Report 26021090 (Version 1)
Quarter: 2025Q4

REPORT INFORMATION
  Report Type: Spontaneous
  Country: US (occurrence: US)
  Receive Date: 20251110
  Receipt Date: 20251110
  Transmission Date: 20260118
  Serious: Yes (Hospitalization)
  Sender: GLENMARK
  Company Number: US-GLENMARK PHARMACEUTICALS-2025GMK105339

PATIENT

DRUGS (2)
  1. ESTRADIOL [Suspect]
     Active Substance: ESTRADIOL
     Indication: Product used for unknown indication
     Dosage: UNK, SINGLE
     Route: 065
  2. ESTRADIOL [Suspect]
     Active Substance: ESTRADIOL

REACTIONS (1)
  - Heart rate increased [Recovered/Resolved]
